FAERS Safety Report 9680834 (Version 3)
Quarter: 2013Q4

REPORT INFORMATION
  Report Type: Spontaneous
  Country: DE (occurrence: DE)
  Receive Date: 20131111
  Receipt Date: 20131209
  Transmission Date: 20140711
  Serious: Yes (Other)
  Sender: FDA-Public Use
  Company Number: PHHY2013DE127478

PATIENT
  Sex: Male

DRUGS (1)
  1. ZOMETA [Suspect]
     Indication: METASTASES TO BONE
     Dosage: 3 MG, EVERY 4-5 WEEKS
     Route: 042
     Dates: start: 201003, end: 20130827

REACTIONS (1)
  - Osteonecrosis of jaw [Recovering/Resolving]
